FAERS Safety Report 5860954-3 (Version None)
Quarter: 2008Q3

REPORT INFORMATION
  Report Type: 
  Country: None (occurrence: None)
  Receive Date: 20080827
  Receipt Date: 20080818
  Transmission Date: 20090109
  Serious: Yes (Other)
  Sender: FDA-Public Use
  Company Number: FR-AMGEN-UK291178

PATIENT
  Age: 68 Year
  Sex: Female

DRUGS (6)
  1. KINERET [Suspect]
     Indication: DRUG USE FOR UNKNOWN INDICATION
     Dates: start: 20051117
  2. COLCHICINE [Concomitant]
  3. AMLOR [Concomitant]
  4. LASIX [Concomitant]
  5. COZAAR [Concomitant]
  6. ARANESP [Concomitant]

REACTIONS (1)
  - HYPERTENSION [None]
